FAERS Safety Report 8429306-6 (Version None)
Quarter: 2012Q2

REPORT INFORMATION
  Report Type: 
  Country: None (occurrence: None)
  Receive Date: 20120612
  Receipt Date: 20120607
  Transmission Date: 20120825
  Serious: Yes (Other)
  Sender: FDA-Public Use
  Company Number: PHEH2012US009661

PATIENT
  Sex: Female

DRUGS (8)
  1. PERCOCET [Concomitant]
     Dosage: UNK UKN, UNK
     Dates: end: 20040101
  2. DIASTAT [Concomitant]
     Indication: CONVULSION
     Dosage: 10 MG, PRN (AS NEEDED)
  3. DYAZIDE [Suspect]
     Indication: BLOOD PRESSURE ABNORMAL
     Dosage: TRIAMETEREN 37.5 MG/ HCTZ 25 MG, ONCE DAILY
     Route: 048
  4. LORCET-HD [Concomitant]
     Dosage: UNK UKN, UNK
     Dates: end: 20040101
  5. TRILEPTAL [Suspect]
     Dosage: UNK UKN, UNK
  6. ASPIRIN [Concomitant]
     Indication: CEREBROVASCULAR ACCIDENT
     Dosage: DAILY
     Route: 048
  7. PLAVIX [Concomitant]
     Indication: CEREBROVASCULAR ACCIDENT
     Dosage: UNK UKN, UNK
     Route: 048
  8. DILANTIN [Concomitant]
     Indication: CONVULSION
     Dosage: 400 MG, EVERY NIGHT ,ONCE DALY
     Route: 048

REACTIONS (5)
  - GAIT DISTURBANCE [None]
  - SPEECH DISORDER [None]
  - OEDEMA PERIPHERAL [None]
  - DRUG INEFFECTIVE [None]
  - CEREBROVASCULAR DISORDER [None]
